FAERS Safety Report 17885886 (Version 2)
Quarter: 2020Q3

REPORT INFORMATION
  Report Type: Report from Study
  Country: US (occurrence: US)
  Receive Date: 20200611
  Receipt Date: 20200807
  Transmission Date: 20201103
  Serious: Yes (Hospitalization)
  Sender: FDA-Public Use
  Company Number: NVSC2020US162131

PATIENT
  Age: 64 Year
  Sex: Male

DRUGS (1)
  1. ENTRESTO [Suspect]
     Active Substance: SACUBITRIL\VALSARTAN
     Indication: CARDIAC FAILURE
     Dosage: 1 DF, BID (24/26 MG)
     Route: 048
     Dates: start: 201912

REACTIONS (4)
  - Rib fracture [Unknown]
  - Femoral neck fracture [Unknown]
  - Road traffic accident [Unknown]
  - Spinal fracture [Unknown]

NARRATIVE: CASE EVENT DATE: 20200529
